FAERS Safety Report 7783774-1 (Version None)
Quarter: 2011Q3

REPORT INFORMATION
  Report Type: 
  Country: None (occurrence: None)
  Receive Date: 20110928
  Receipt Date: 20110526
  Transmission Date: 20111222
  Serious: No
  Sender: FDA-Public Use
  Company Number: US-BAYER-2011-047147

PATIENT
  Age: 59 Year
  Sex: Female
  Weight: 104 kg

DRUGS (7)
  1. HALDOL [Concomitant]
  2. KLONOPIN [Concomitant]
  3. ACTOS [Concomitant]
  4. ALEVE (CAPLET) [Suspect]
     Indication: ANALGESIC THERAPY
     Dosage: 2 TABS DAILY
     Route: 048
     Dates: start: 20110301
  5. PREGNENOLONE ACETATE [Concomitant]
  6. METFORMIN HCL [Concomitant]
  7. COZAAR [Concomitant]

REACTIONS (2)
  - INCORRECT DOSE ADMINISTERED [None]
  - MUSCLE SPASMS [None]
